FAERS Safety Report 19123996 (Version 1)
Quarter: 2021Q2

REPORT INFORMATION
  Report Type: Spontaneous
  Country: NO (occurrence: NO)
  Receive Date: 20210412
  Receipt Date: 20210412
  Transmission Date: 20210717
  Serious: Yes (Other)
  Sender: FDA-Public Use
  Company Number: PHHY2016NO005495

PATIENT
  Age: 67 Year
  Sex: Female

DRUGS (2)
  1. IMATINIB. [Suspect]
     Active Substance: IMATINIB MESYLATE
     Indication: GASTROINTESTINAL STROMAL TUMOUR
     Dosage: 400 MILLIGRAM, DAILY
     Route: 065
  2. IMATINIB. [Suspect]
     Active Substance: IMATINIB MESYLATE
     Dosage: 300 MG, QD
     Route: 065

REACTIONS (2)
  - Neutropenia [Unknown]
  - Drug intolerance [Unknown]
